FAERS Safety Report 7774565-6 (Version None)
Quarter: 2011Q3

REPORT INFORMATION
  Report Type: 
  Country: None (occurrence: None)
  Receive Date: 20110923
  Receipt Date: 20110912
  Transmission Date: 20111222
  Serious: Yes (Hospitalization, Other)
  Sender: FDA-Public Use
  Company Number: GB-SANOFI-AVENTIS-2011SA061705

PATIENT
  Age: 23 Year
  Sex: Female

DRUGS (12)
  1. ELSPAR [Suspect]
     Route: 065
  2. VINCRISTINE [Concomitant]
  3. METHOTREXATE [Concomitant]
  4. ORAL CONTRACEPTIVE NOS [Suspect]
     Indication: CONTRACEPTION
     Route: 048
  5. ENOXAPARIN SODIUM [Suspect]
     Indication: CEREBRAL VENOUS THROMBOSIS
     Route: 058
  6. DEXAMETHASONE [Concomitant]
  7. VINCRISTINE [Concomitant]
     Dosage: ON DAY 1
  8. DOXORUBICIN HCL [Concomitant]
  9. DOXORUBICIN HCL [Concomitant]
  10. ELSPAR [Suspect]
     Route: 065
  11. DEXAMETHASONE [Concomitant]
     Dosage: ON DAYS 1-7
  12. METHOTREXATE [Concomitant]
     Route: 037

REACTIONS (13)
  - APHASIA [None]
  - COMA SCALE ABNORMAL [None]
  - DYSAESTHESIA [None]
  - MUSCULAR WEAKNESS [None]
  - COAGULOPATHY [None]
  - HYPOAESTHESIA [None]
  - NAUSEA [None]
  - ACTIVATED PARTIAL THROMBOPLASTIN TIME PROLONGED [None]
  - CEREBRAL VENOUS THROMBOSIS [None]
  - HYPOREFLEXIA [None]
  - HEADACHE [None]
  - HYPOCOAGULABLE STATE [None]
  - THALAMUS HAEMORRHAGE [None]
